FAERS Safety Report 7915518-4 (Version None)
Quarter: 2011Q4

REPORT INFORMATION
  Report Type: 
  Country: None (occurrence: None)
  Receive Date: 20111115
  Receipt Date: 20111108
  Transmission Date: 20120403
  Serious: Yes (Other)
  Sender: FDA-Public Use
  Company Number: DE-BRISTOL-MYERS SQUIBB COMPANY-16221285

PATIENT
  Age: 43 Year
  Sex: Female

DRUGS (6)
  1. ABILIFY [Suspect]
  2. DIAZEPAM [Suspect]
     Dosage: TABLETS
  3. BISOPROLOL FUMARATE [Suspect]
  4. HALDOL [Suspect]
     Dosage: TABLETS
  5. CYMBALTA [Suspect]
     Dosage: CAPSULES
  6. TRUXAL [Suspect]
     Dosage: IF NEEDED BID,

REACTIONS (2)
  - WEIGHT INCREASED [None]
  - OEDEMA [None]
